FAERS Safety Report 10754404 (Version 1)
Quarter: 2015Q1

REPORT INFORMATION
  Report Type: Spontaneous
  Country: FR (occurrence: FR)
  Receive Date: 20150202
  Receipt Date: 20150202
  Transmission Date: 20150721
  Serious: Yes (Other)
  Sender: FDA-Public Use
  Company Number: PHHY2015FR009234

PATIENT
  Sex: Male

DRUGS (11)
  1. RITALINE [Suspect]
     Active Substance: METHYLPHENIDATE HYDROCHLORIDE
     Indication: PRODUCT USED FOR UNKNOWN INDICATION
     Route: 048
  2. TERONAC [Concomitant]
     Dosage: UNK
     Route: 065
     Dates: start: 20110418
  3. DIMINEX [Suspect]
     Active Substance: MAZINDOL
     Dosage: 2 MG, QD
     Route: 048
     Dates: start: 20131206
  4. TERONAC [Concomitant]
     Dosage: UNK
     Route: 065
     Dates: start: 20101008
  5. DIMINEX [Suspect]
     Active Substance: MAZINDOL
     Indication: HYPERSOMNIA
     Dosage: 2 MG, QD
     Route: 048
  6. TERONAC [Concomitant]
     Indication: SLEEP DISORDER
     Dosage: UNK
     Route: 065
     Dates: start: 20080919
  7. TERONAC [Concomitant]
     Dosage: UNK
     Route: 065
     Dates: start: 20120921
  8. TERONAC [Concomitant]
     Dosage: UNK
     Route: 065
     Dates: start: 20130307
  9. MODIODAL [Suspect]
     Active Substance: MODAFINIL
     Indication: PRODUCT USED FOR UNKNOWN INDICATION
     Route: 048
  10. TERONAC [Concomitant]
     Dosage: UNK
     Route: 065
     Dates: start: 20120515
  11. TERONAC [Concomitant]
     Dosage: UNK
     Route: 065
     Dates: start: 20090630

REACTIONS (1)
  - Mitral valve prolapse [Unknown]
